FAERS Safety Report 9179340 (Version 1)
Quarter: 2013Q1

REPORT INFORMATION
  Report Type: Spontaneous
  Country: JP (occurrence: JP)
  Receive Date: 20130321
  Receipt Date: 20130321
  Transmission Date: 20140127
  Serious: Yes (Other)
  Sender: FDA-Public Use
  Company Number: JP-PFIZER INC-2013065854

PATIENT
  Age: 17 Year
  Sex: Female

DRUGS (1)
  1. SOLANAX [Suspect]
     Indication: ANXIETY
     Dosage: 0.4 MG, 1X/DAY
     Route: 048
     Dates: start: 20130219, end: 20130220

REACTIONS (2)
  - Intentional overdose [Recovered/Resolved]
  - Suicide attempt [Recovered/Resolved]
